FAERS Safety Report 6289243-2 (Version None)
Quarter: 2009Q3

REPORT INFORMATION
  Report Type: 
  Country: None (occurrence: None)
  Receive Date: 20090729
  Receipt Date: 20090717
  Transmission Date: 20100115
  Serious: Yes (Other)
  Sender: FDA-Public Use
  Company Number: US-ASTRAZENECA-2009SE05098

PATIENT
  Age: 8 Month
  Sex: Female

DRUGS (5)
  1. BUPIVACAINE [Suspect]
     Indication: ANAESTHESIA PROCEDURE
     Route: 053
  2. BUPIVACAINE [Suspect]
     Dosage: BUPIVACAINE 0.1% PLUS HYDROMORPHONE 2MCG/ML AT 3.5 ML/H FOR 52 HOURS
     Route: 053
  3. HYDROMORPHONE HCL [Concomitant]
     Indication: ANAESTHESIA PROCEDURE
  4. PHENOBARBITAL [Concomitant]
     Indication: CONVULSION
  5. CLONAZEPAM [Concomitant]
     Indication: CONVULSION

REACTIONS (1)
  - CONVULSION [None]
